FAERS Safety Report 6653598-7 (Version None)
Quarter: 2010Q1

REPORT INFORMATION
  Report Type: 
  Country: None (occurrence: None)
  Receive Date: 20100324
  Receipt Date: 20100315
  Transmission Date: 20100710
  Serious: Yes (Hospitalization, Other)
  Sender: FDA-Public Use
  Company Number: CQT2-2007-00014

PATIENT
  Age: 35 Year
  Sex: Female
  Weight: 70.8 kg

DRUGS (18)
  1. ANAGRELIDE HCL [Suspect]
     Dosage: 1.5 MG 1X/DAY;QD, ORAL 0.5MG, 2X/DAY:BID ORAL  1.5 MG, 1X/DAY;QD,ORAL 1MG/1XDAY:QD ORAL
     Route: 048
     Dates: start: 20061222, end: 20070301
  2. ANAGRELIDE HCL [Suspect]
     Dosage: 1.5 MG 1X/DAY;QD, ORAL 0.5MG, 2X/DAY:BID ORAL  1.5 MG, 1X/DAY;QD,ORAL 1MG/1XDAY:QD ORAL
     Route: 048
     Dates: start: 20070525, end: 20070718
  3. ANAGRELIDE HCL [Suspect]
     Dosage: 1.5 MG 1X/DAY;QD, ORAL 0.5MG, 2X/DAY:BID ORAL  1.5 MG, 1X/DAY;QD,ORAL 1MG/1XDAY:QD ORAL
     Route: 048
     Dates: start: 20071118, end: 20071214
  4. ANAGRELIDE HCL [Suspect]
     Dosage: 1.5 MG 1X/DAY;QD, ORAL 0.5MG, 2X/DAY:BID ORAL  1.5 MG, 1X/DAY;QD,ORAL 1MG/1XDAY:QD ORAL
     Route: 048
     Dates: start: 20070726, end: 20071218
  5. ANAGRELIDE HCL [Suspect]
     Dosage: 1.5 MG 1X/DAY;QD, ORAL 0.5MG, 2X/DAY:BID ORAL  1.5 MG, 1X/DAY;QD,ORAL 1MG/1XDAY:QD ORAL
     Route: 048
     Dates: start: 20080905, end: 20090213
  6. ANAGRELIDE HCL [Suspect]
     Dosage: 1.5 MG 1X/DAY;QD, ORAL 0.5MG, 2X/DAY:BID ORAL  1.5 MG, 1X/DAY;QD,ORAL 1MG/1XDAY:QD ORAL
     Route: 048
     Dates: start: 20071222
  7. ANAGRELIDE HCL [Suspect]
     Dosage: 1.5 MG 1X/DAY;QD, ORAL 0.5MG, 2X/DAY:BID ORAL  1.5 MG, 1X/DAY;QD,ORAL 1MG/1XDAY:QD ORAL
     Route: 048
     Dates: start: 20090214
  8. PEGYLATED INTERFERON ALFA 2A (PEGYLATED INTERFERON ALFA 2A) [Suspect]
     Indication: ESSENTIAL THROMBOCYTHAEMIA
     Dosage: 45 UG, 1X/WEEK, SUBCUTANEOUS 90UG,1X/WEEK, SUBCUTANEOUS
     Route: 058
     Dates: start: 20000201, end: 20000601
  9. PEGYLATED INTERFERON ALFA 2A (PEGYLATED INTERFERON ALFA 2A) [Suspect]
     Indication: ESSENTIAL THROMBOCYTHAEMIA
     Dosage: 45 UG, 1X/WEEK, SUBCUTANEOUS 90UG,1X/WEEK, SUBCUTANEOUS
     Route: 058
     Dates: start: 20060814, end: 20061204
  10. PEGYLATED INTERFERON ALFA 2A (PEGYLATED INTERFERON ALFA 2A) [Suspect]
     Indication: ESSENTIAL THROMBOCYTHAEMIA
     Dosage: 45 UG, 1X/WEEK, SUBCUTANEOUS 90UG,1X/WEEK, SUBCUTANEOUS
     Route: 058
     Dates: start: 20070301, end: 20070529
  11. PEGYLATED INTERFERON ALFA 2A (PEGYLATED INTERFERON ALFA 2A) [Suspect]
     Indication: ESSENTIAL THROMBOCYTHAEMIA
     Dosage: 45 UG, 1X/WEEK, SUBCUTANEOUS 90UG,1X/WEEK, SUBCUTANEOUS
     Route: 058
     Dates: start: 20070718, end: 20070826
  12. PEGYLATED INTERFERON ALFA 2A (PEGYLATED INTERFERON ALFA 2A) [Suspect]
     Indication: ESSENTIAL THROMBOCYTHAEMIA
     Dosage: 45 UG, 1X/WEEK, SUBCUTANEOUS 90UG,1X/WEEK, SUBCUTANEOUS
     Route: 058
     Dates: start: 20071218, end: 20071222
  13. HYDROXYUREA [Suspect]
     Indication: ESSENTIAL THROMBOCYTHAEMIA
     Dosage: 500 MG, 1X/DAY;QD, ORAL 1 G, 1XDAY;QD, ORAL
     Route: 048
     Dates: start: 19980101, end: 20061120
  14. HYDROXYUREA [Suspect]
     Indication: ESSENTIAL THROMBOCYTHAEMIA
     Dosage: 500 MG, 1X/DAY;QD, ORAL 1 G, 1XDAY;QD, ORAL
     Route: 048
     Dates: start: 19980101
  15. ACETYLSALICYLIC ACID SRT [Suspect]
     Indication: ESSENTIAL THROMBOCYTHAEMIA
     Dosage: 75 MG, 1X/DAY;QD, ORAL
     Route: 048
     Dates: start: 20020101, end: 20020101
  16. AMITRIPTYLINE HYDROCHLORIDE [Concomitant]
  17. TRAMADOL HCL [Concomitant]
  18. ENOXAPARIN (ENOXAPARIN) INJECTION [Concomitant]

REACTIONS (3)
  - ABORTION SPONTANEOUS [None]
  - DRUG EXPOSURE DURING PREGNANCY [None]
  - TWIN PREGNANCY [None]
